FAERS Safety Report 6878348-0 (Version None)
Quarter: 2010Q3

REPORT INFORMATION
  Report Type: 
  Country: None (occurrence: None)
  Receive Date: 20100728
  Receipt Date: 20100721
  Transmission Date: 20110219
  Serious: Yes (Other)
  Sender: FDA-Public Use
  Company Number: US-PFIZER INC-2010084912

PATIENT
  Sex: Female
  Weight: 72.562 kg

DRUGS (13)
  1. ANTIVERT [Suspect]
     Indication: VERTIGO
     Dosage: 25 MG, 3X/DAY
     Route: 048
     Dates: start: 19890101
  2. BENADRYL [Suspect]
     Indication: HYPERSENSITIVITY
     Dosage: UNK
  3. VALIUM [Concomitant]
     Dosage: UNK
     Dates: start: 19850101
  4. WELCHOL [Concomitant]
     Dosage: UNK
  5. ZESTRIL [Concomitant]
     Dosage: UNK
  6. SITAGLIPTIN [Concomitant]
     Dosage: UNK
  7. METFORMIN [Concomitant]
     Dosage: UNK
  8. ZANTAC [Concomitant]
     Dosage: UNK
  9. GLUCOTROL [Concomitant]
     Dosage: UNK
  10. ALBUTEROL [Concomitant]
     Dosage: UNK
  11. LANTUS [Concomitant]
     Dosage: UNK
  12. INDERAL [Concomitant]
     Dosage: UNK
     Dates: start: 19850101
  13. OXYGEN [Concomitant]
     Dosage: UNK

REACTIONS (5)
  - BLOOD GLUCOSE DECREASED [None]
  - DRUG INEFFECTIVE [None]
  - FATIGUE [None]
  - MALAISE [None]
  - SOMNOLENCE [None]
